APPROVED DRUG PRODUCT: INDOMETHACIN
Active Ingredient: INDOMETHACIN
Strength: 75MG
Dosage Form/Route: CAPSULE, EXTENDED RELEASE;ORAL
Application: A076114 | Product #001
Applicant: ABLE LABORATORIES INC
Approved: Feb 6, 2002 | RLD: No | RS: No | Type: DISCN